FAERS Safety Report 14009152 (Version 1)
Quarter: 2017Q3

REPORT INFORMATION
  Report Type: Spontaneous
  Country: FR (occurrence: FR)
  Receive Date: 20170925
  Receipt Date: 20170925
  Transmission Date: 20171128
  Serious: Yes (Life-Threatening, Hospitalization, Other)
  Sender: FDA-Public Use
  Company Number: FR-BRISTOL-MYERS SQUIBB COMPANY-BMS-2017-081642

PATIENT
  Age: 67 Year
  Sex: Female

DRUGS (1)
  1. NULOJIX [Suspect]
     Active Substance: BELATACEPT
     Indication: LUNG TRANSPLANT
     Dosage: 10 MG/KG, UNK
     Route: 042
     Dates: start: 20170622

REACTIONS (4)
  - Drug ineffective [Recovering/Resolving]
  - Respiratory distress [Recovering/Resolving]
  - Product use in unapproved indication [Unknown]
  - Lung transplant rejection [Recovering/Resolving]

NARRATIVE: CASE EVENT DATE: 201707
